FAERS Safety Report 9678045 (Version 1)
Quarter: 2013Q4

REPORT INFORMATION
  Report Type: Spontaneous
  Country: GB (occurrence: None)
  Receive Date: 20131106
  Receipt Date: 20131106
  Transmission Date: 20140711
  Serious: Yes (Other)
  Sender: FDA-Public Use
  Company Number: SYM-2013-12294

PATIENT
  Age: 39 Year
  Sex: Male

DRUGS (3)
  1. METRONIDAZOLE (METRONIDAZOLE) (METRONIDAZOLE) [Suspect]
     Indication: HELICOBACTER INFECTION
     Route: 048
     Dates: start: 20131005, end: 20131006
  2. AMOXICILLIN (AMOXICILLIN) (AMOXICILLIN) [Concomitant]
  3. OMEPRAZOLE (OMEPRAZOLE) (OMEPRAZOLE) [Concomitant]

REACTIONS (1)
  - Meningitis aseptic [None]
